FAERS Safety Report 16138215 (Version 1)
Quarter: 2019Q1

REPORT INFORMATION
  Report Type: Spontaneous
  Country: FR (occurrence: FR)
  Receive Date: 20190330
  Receipt Date: 20190330
  Transmission Date: 20190418
  Serious: Yes (Life-Threatening, Other)
  Sender: FDA-Public Use
  Company Number: FR-ACCORD-116944

PATIENT
  Age: 71 Year
  Sex: Female
  Weight: 77 kg

DRUGS (10)
  1. SIMVASTATIN. [Concomitant]
     Active Substance: SIMVASTATIN
  2. TRAMADOL. [Suspect]
     Active Substance: TRAMADOL
     Dosage: DATE OF LAST ADMINISTRATION: 18-DEC-2018
     Route: 048
     Dates: start: 20181218
  3. JANUMET [Concomitant]
     Active Substance: METFORMIN HYDROCHLORIDE\SITAGLIPTIN PHOSPHATE
  4. ALLOPURINOL. [Concomitant]
     Active Substance: ALLOPURINOL
  5. GLICLAZIDE [Suspect]
     Active Substance: GLICLAZIDE
     Dosage: DATE OF LAST ADMINISTRATION: 18-DEC-2018
     Route: 048
     Dates: start: 20181218
  6. URAPIDIL [Concomitant]
     Active Substance: URAPIDIL
  7. PANTOPRAZOLE [Concomitant]
     Active Substance: PANTOPRAZOLE
  8. LISINOPRIL. [Suspect]
     Active Substance: LISINOPRIL
     Dosage: DATE OF LAST ADMINISTRATION: 18-DEC-2018
     Route: 048
     Dates: start: 20181218
  9. AMLODIPINE [Concomitant]
     Active Substance: AMLODIPINE BESYLATE
  10. KARDEGIC [Concomitant]
     Active Substance: ASPIRIN DL-LYSINE

REACTIONS (6)
  - Acute kidney injury [Recovered/Resolved]
  - Suicide attempt [Unknown]
  - Somnolence [Recovered/Resolved]
  - Diarrhoea [Recovered/Resolved]
  - Hypokalaemia [Recovered/Resolved]
  - Lactic acidosis [Recovered/Resolved]

NARRATIVE: CASE EVENT DATE: 20181218
